FAERS Safety Report 9610857 (Version 1)
Quarter: 2013Q4

REPORT INFORMATION
  Report Type: Spontaneous
  Country: HR (occurrence: HR)
  Receive Date: 20131009
  Receipt Date: 20131009
  Transmission Date: 20140711
  Serious: Yes (Other)
  Sender: FDA-Public Use
  Company Number: PHHY2013HR110435

PATIENT
  Age: 15 Year
  Sex: Female

DRUGS (3)
  1. PYRIDOSTIGMINE [Suspect]
     Indication: MYASTHENIA GRAVIS
     Dosage: 1 MG/KG, UNK
  2. IVIG [Concomitant]
     Dosage: 2 MG/KG, FOR 5 DAYS
  3. PREDNISOLONE [Concomitant]
     Dosage: 1 MG/KG, UNK

REACTIONS (6)
  - Respiratory failure [Recovered/Resolved]
  - Myasthenia gravis crisis [Recovered/Resolved]
  - Extraocular muscle paresis [Recovered/Resolved]
  - Asthenia [Recovered/Resolved]
  - Myasthenia gravis [Recovered/Resolved]
  - Drug ineffective [Unknown]
